FAERS Safety Report 5206770-7 (Version None)
Quarter: 2006Q4

REPORT INFORMATION
  Report Type: 
  Country: None (occurrence: None)
  Receive Date: 20061031
  Receipt Date: 20060821
  Transmission Date: 20070319
  Serious: Yes (Other)
  Sender: FDA-Public Use
  Company Number: US200608006287

PATIENT
  Sex: Male

DRUGS (1)
  1. SYMBYAX [Suspect]
     Dosage: D/F

REACTIONS (1)
  - HYPERGLYCAEMIA [None]
